FAERS Safety Report 9245664 (Version 4)
Quarter: 2013Q4

REPORT INFORMATION
  Report Type: Report from Study
  Country: FR (occurrence: FR)
  Receive Date: 20130422
  Receipt Date: 20131011
  Transmission Date: 20140711
  Serious: Yes (Death, Life-Threatening, Hospitalization)
  Sender: FDA-Public Use
  Company Number: FR-BAYER-2013-047165

PATIENT
  Age: 65 Year
  Sex: Male
  Weight: 86 kg

DRUGS (4)
  1. REGORAFENIB [Suspect]
     Indication: GASTROINTESTINAL STROMAL CANCER
     Dosage: DAILY DOSE 160 MG
     Route: 048
     Dates: start: 20130215, end: 20130308
  2. REGORAFENIB [Suspect]
     Indication: GASTROINTESTINAL STROMAL CANCER
     Dosage: DAILY DOSE 160 MG
     Dates: start: 20130315, end: 20130325
  3. REGORAFENIB [Suspect]
     Indication: GASTROINTESTINAL STROMAL CANCER
     Dosage: DAILY DOSE 160 MG
     Dates: start: 20130328, end: 20130407
  4. KARDEGIC [Concomitant]
     Indication: PULMONARY EMBOLISM
     Dosage: 75 MG
     Dates: start: 20111110, end: 20130409

REACTIONS (8)
  - Tumour perforation [Fatal]
  - Intestinal perforation [Fatal]
  - Hypertension [None]
  - Abdominal pain upper [None]
  - Back pain [None]
  - Presyncope [None]
  - Peritonitis [Fatal]
  - Septic shock [Fatal]
